FAERS Safety Report 4542443-1 (Version None)
Quarter: 2004Q4

REPORT INFORMATION
  Report Type: 
  Country: None (occurrence: None)
  Receive Date: 20041229
  Receipt Date: 20041220
  Transmission Date: 20050328
  Serious: Yes (Life-Threatening, Hospitalization)
  Sender: FDA-Public Use
  Company Number: 200319857BWH

PATIENT
  Age: 56 Year
  Sex: Female

DRUGS (6)
  1. AVELOX [Suspect]
     Indication: UPPER RESPIRATORY TRACT INFECTION
     Dosage: 400 MG, QD, ORAL
     Route: 048
     Dates: start: 20030120, end: 20030121
  2. PROZAC [Suspect]
     Indication: DEPRESSION
     Dosage: 20 MG, QD, ORAL
     Route: 048
  3. SINGULAIR [Concomitant]
  4. MAXZIDE [Concomitant]
  5. CLARITIN [Concomitant]
  6. ADVAIR(SALMETEROL XINAFOATE/FLUTICASONE PROPIONATE) [Concomitant]

REACTIONS (3)
  - CIRCULATORY COLLAPSE [None]
  - TORSADE DE POINTES [None]
  - VENTRICULAR FIBRILLATION [None]
